FAERS Safety Report 25487292 (Version 1)
Quarter: 2025Q2

REPORT INFORMATION
  Report Type: Spontaneous
  Country: NL (occurrence: None)
  Receive Date: 20250627
  Receipt Date: 20250627
  Transmission Date: 20250716
  Serious: Yes (Hospitalization)
  Sender: Unknown Manufacturer
  Company Number: NL-CTRS-202500175

PATIENT
  Age: 66 Year
  Sex: Male

DRUGS (1)
  1. HYDROXYUREA [Suspect]
     Active Substance: HYDROXYUREA
     Indication: Polycythaemia vera

REACTIONS (12)
  - Nausea [Recovering/Resolving]
  - Decreased appetite [Recovering/Resolving]
  - Malaise [Recovering/Resolving]
  - Vomiting [Recovering/Resolving]
  - Abdominal pain [Recovering/Resolving]
  - Skin disorder [Recovered/Resolved]
  - Gastrointestinal inflammation [Recovering/Resolving]
  - Acute kidney injury [Recovering/Resolving]
  - Pancytopenia [Recovering/Resolving]
  - Metabolic acidosis [Recovering/Resolving]
  - Myalgia [Recovering/Resolving]
  - Muscular weakness [Recovering/Resolving]
